FAERS Safety Report 10010136 (Version 2)
Quarter: 2014Q1

REPORT INFORMATION
  Report Type: Spontaneous
  Country: US (occurrence: US)
  Receive Date: 20140312
  Receipt Date: 20140312
  Transmission Date: 20141002
  Serious: No
  Sender: FDA-Public Use
  Company Number: US-INCYTE CORPORATION-2013IN001047

PATIENT
  Age: 72 Year
  Sex: Female
  Weight: 55.78 kg

DRUGS (4)
  1. JAKAFI [Suspect]
     Dosage: 15 MG, BID
     Route: 048
     Dates: start: 201301
  2. NEXIUM [Concomitant]
     Dosage: 40 MG, UNK
  3. WARFARIN [Concomitant]
     Dosage: 5 MG, UNK
  4. OXYCODONE [Concomitant]
     Dosage: 10 MG, UNK

REACTIONS (2)
  - Bone pain [Unknown]
  - Transfusion [Unknown]
